FAERS Safety Report 22254570 (Version 1)
Quarter: 2023Q2

REPORT INFORMATION
  Report Type: Spontaneous
  Country: AU (occurrence: AU)
  Receive Date: 20230426
  Receipt Date: 20230426
  Transmission Date: 20230721
  Serious: Yes (Other)
  Sender: FDA-Public Use
  Company Number: AU-SA-SAC20230426000109

PATIENT
  Age: 63 Year
  Sex: Female

DRUGS (1)
  1. LEFLUNOMIDE [Suspect]
     Active Substance: LEFLUNOMIDE
     Dosage: UNK
     Route: 065

REACTIONS (1)
  - Conjunctival haemorrhage [Recovering/Resolving]
